FAERS Safety Report 7215371-0 (Version None)
Quarter: 2011Q1

REPORT INFORMATION
  Report Type: 
  Country: None (occurrence: None)
  Receive Date: 20110107
  Receipt Date: 20101119
  Transmission Date: 20110831
  Serious: Yes (Other)
  Sender: FDA-Public Use
  Company Number: US-BAYER-201034110NA

PATIENT
  Sex: Female
  Weight: 64.399 kg

DRUGS (1)
  1. MIRENA [Suspect]
     Indication: CONTRACEPTION
     Dosage: 20 A?G (DAILY DOSE), , INTRA-UTERINE
     Route: 015
     Dates: start: 20081126, end: 20100903

REACTIONS (11)
  - INFLUENZA LIKE ILLNESS [None]
  - ABORTION MISSED [None]
  - FEELING HOT [None]
  - GROIN PAIN [None]
  - PREGNANCY WITH CONTRACEPTIVE DEVICE [None]
  - PAIN IN EXTREMITY [None]
  - UTERINE ENLARGEMENT [None]
  - ANTEPARTUM HAEMORRHAGE [None]
  - AMENORRHOEA [None]
  - VAGINAL HAEMORRHAGE [None]
  - DEVICE DISLOCATION [None]
